FAERS Safety Report 9330697 (Version 3)
Quarter: 2013Q3

REPORT INFORMATION
  Report Type: Report from Study
  Country: IL (occurrence: IL)
  Receive Date: 20130605
  Receipt Date: 20130715
  Transmission Date: 20140515
  Serious: Yes (Disabling)
  Sender: FDA-Public Use
  Company Number: IL-ROCHE-1229100

PATIENT
  Age: 63 Year
  Sex: Male

DRUGS (13)
  1. METHOXY POLYETHYLENE GLYCOL-EPOETIN BETA [Suspect]
     Indication: NEPHROGENIC ANAEMIA
     Route: 042
  2. CINACALCET [Concomitant]
     Route: 065
     Dates: start: 20091115
  3. BONDORMIN [Concomitant]
     Route: 065
     Dates: start: 20091115
  4. DIOVAN [Concomitant]
     Route: 065
     Dates: start: 20091115
  5. ALPHA D3 [Concomitant]
     Route: 065
     Dates: start: 20130315
  6. NORMALOL [Concomitant]
     Route: 065
     Dates: start: 20091115
  7. OMEPRADEX [Concomitant]
     Route: 065
     Dates: start: 20091115
  8. VENOFER [Concomitant]
     Route: 065
     Dates: start: 20110214
  9. FOSRENOL [Concomitant]
     Route: 065
     Dates: start: 20110117
  10. LYRICA [Concomitant]
     Route: 065
     Dates: start: 20121215, end: 20130315
  11. DEPALEPT [Concomitant]
     Route: 065
     Dates: start: 20120815
  12. MICROPIRIN [Concomitant]
     Route: 065
     Dates: start: 20090915
  13. SIMVACOR [Concomitant]
     Route: 065
     Dates: start: 20130315

REACTIONS (1)
  - Pulmonary congestion [Recovered/Resolved]
